FAERS Safety Report 9061909 (Version 1)
Quarter: 2013Q1

REPORT INFORMATION
  Report Type: Spontaneous
  Country: US (occurrence: None)
  Receive Date: 20130122
  Receipt Date: 20130122
  Transmission Date: 20140127
  Serious: Yes (Death, Other)
  Sender: FDA-Public Use
  Company Number: 2013MA000321

PATIENT
  Age: 48 Year
  Sex: Female

DRUGS (3)
  1. KADIAN [Suspect]
     Indication: COMPLETED SUICIDE
     Dosage: ; PO
     Route: 048
  2. ACETAMINOPHEN / HYDROCODONE [Suspect]
     Indication: COMPLETED SUICIDE
     Dosage: ; PO
     Route: 048
  3. ACETAMINOPHEN\DIPHENHYDRAMINE [Suspect]
     Indication: COMPLETED SUICIDE
     Dosage: ; PO
     Route: 048

REACTIONS (1)
  - Completed suicide [None]
